FAERS Safety Report 6309510-3 (Version None)
Quarter: 2009Q3

REPORT INFORMATION
  Report Type: 
  Country: None (occurrence: None)
  Receive Date: 20090814
  Receipt Date: 20090805
  Transmission Date: 20100115
  Serious: Yes (Hospitalization)
  Sender: FDA-Public Use
  Company Number: US-CELGENEUS-163-21880-09031001

PATIENT
  Sex: Male

DRUGS (3)
  1. REVLIMID [Suspect]
     Indication: MULTIPLE MYELOMA
     Route: 048
     Dates: start: 20090313, end: 20090101
  2. REVLIMID [Suspect]
     Route: 048
     Dates: start: 20080601, end: 20080701
  3. REVLIMID [Suspect]
     Route: 048
     Dates: start: 20081017, end: 20090101

REACTIONS (5)
  - DIABETIC FOOT [None]
  - FATIGUE [None]
  - LOCALISED INFECTION [None]
  - PAIN IN EXTREMITY [None]
  - RENAL FAILURE [None]
